FAERS Safety Report 4743580-9 (Version None)
Quarter: 2005Q3

REPORT INFORMATION
  Report Type: 
  Country: None (occurrence: None)
  Receive Date: 20050810
  Receipt Date: 20050810
  Transmission Date: 20060218
  Serious: Yes (Hospitalization)
  Sender: FDA-Public Use
  Company Number: None

PATIENT
  Age: 63 Year
  Sex: Male
  Weight: 95.5 kg

DRUGS (15)
  1. OXYCODONE AND ACETAMINOPHEN [Suspect]
     Indication: PAIN
     Dosage: 5/325 MG -8 TAB / DAY
     Dates: start: 20050106
  2. SIMVASTATIN [Concomitant]
  3. OMEPRAZOLE [Concomitant]
  4. METFORMIN HCL [Concomitant]
  5. QUETIAPINE FUMARATE [Concomitant]
  6. LORAZEPAM [Concomitant]
  7. CITALOPRAM [Concomitant]
  8. CYCLOBENZAPRINE HCL [Concomitant]
  9. GABAPENTIN [Concomitant]
  10. GLYBURIDE [Concomitant]
  11. NPH INSULIN [Concomitant]
  12. REGULAR INSULIN SLIDING SCALE [Concomitant]
  13. LISINOPRIL [Concomitant]
  14. METOPROLOL [Concomitant]
  15. NITROGLYCERIN [Concomitant]

REACTIONS (9)
  - ABDOMINAL DISTENSION [None]
  - COLONIC POLYP [None]
  - CONSTIPATION [None]
  - DYSPNOEA [None]
  - FAECALOMA [None]
  - LARGE INTESTINAL ULCER [None]
  - LOSS OF CONSCIOUSNESS [None]
  - NAUSEA [None]
  - PAIN [None]
